FAERS Safety Report 7026902-8 (Version None)
Quarter: 2010Q4

REPORT INFORMATION
  Report Type: 
  Country: None (occurrence: None)
  Receive Date: 20101004
  Receipt Date: 20100929
  Transmission Date: 20110411
  Serious: Yes (Hospitalization)
  Sender: FDA-Public Use
  Company Number: A0884020A

PATIENT
  Age: 72 Year
  Sex: Male

DRUGS (5)
  1. ADVAIR DISKUS 100/50 [Suspect]
     Indication: CHRONIC OBSTRUCTIVE PULMONARY DISEASE
     Dosage: 1PUFF TWICE PER DAY
     Route: 055
     Dates: start: 20091001
  2. UNSPECIFIED MEDICATION [Concomitant]
  3. RIFAMPIN [Concomitant]
  4. DIGOXIN [Concomitant]
  5. TESSALON [Concomitant]

REACTIONS (5)
  - CARDIAC FAILURE CONGESTIVE [None]
  - CHEST PAIN [None]
  - COUGH [None]
  - DYSPNOEA [None]
  - PNEUMONIA STAPHYLOCOCCAL [None]
